FAERS Safety Report 15436184 (Version 1)
Quarter: 2018Q3

REPORT INFORMATION
  Report Type: Spontaneous
  Country: US (occurrence: US)
  Receive Date: 20180927
  Receipt Date: 20180927
  Transmission Date: 20181010
  Serious: No
  Sender: FDA-Public Use
  Company Number: US-BRISTOL-MYERS SQUIBB COMPANY-BMS-2018-089695

PATIENT
  Sex: Female

DRUGS (2)
  1. MEGACE [Suspect]
     Active Substance: MEGESTROL ACETATE
     Indication: PRODUCT USED FOR UNKNOWN INDICATION
     Dosage: 40 MG, QD
     Route: 065
  2. MEGACE [Suspect]
     Active Substance: MEGESTROL ACETATE
     Indication: SARCOMA UTERUS
     Dosage: 160 MG, QD
     Route: 065

REACTIONS (2)
  - Product use in unapproved indication [Unknown]
  - Cortisol decreased [Unknown]
